FAERS Safety Report 21298576 (Version 11)
Quarter: 2023Q4

REPORT INFORMATION
  Report Type: Spontaneous
  Country: US (occurrence: US)
  Receive Date: 20220906
  Receipt Date: 20231221
  Transmission Date: 20240110
  Serious: No
  Sender: FDA-Public Use
  Company Number: US-BRISTOL-MYERS SQUIBB COMPANY-2022-100967

PATIENT
  Age: 75 Year
  Sex: Female
  Weight: 66.68 kg

DRUGS (2)
  1. REVLIMID [Suspect]
     Active Substance: LENALIDOMIDE
     Indication: Myelodysplastic syndrome
     Dosage: FREQUENCY: 1 CAPSULE DAILY FOR 2 DAYS, THEN 2 CAPSULES ON DAY 3, THEN REPEAT CYCLE.?BATCH NUMBER: A3
     Route: 048
     Dates: start: 20200527
  2. REVLIMID [Suspect]
     Active Substance: LENALIDOMIDE
     Dosage: 1 TABLET DAILY X 2 DAYS, 2 TABLETS DAILY X 3 DAYS THEN REPEAT?FREQUENCY : 37
     Route: 048
     Dates: start: 20200527

REACTIONS (16)
  - Fatigue [Not Recovered/Not Resolved]
  - Diarrhoea [Recovered/Resolved]
  - Rash [Recovered/Resolved]
  - Off label use [Unknown]
  - Dyspnoea [Unknown]
  - White blood cell count decreased [Not Recovered/Not Resolved]
  - Asthenia [Not Recovered/Not Resolved]
  - Inappropriate schedule of product administration [Unknown]
  - Sleep disorder [Not Recovered/Not Resolved]
  - Contusion [Recovered/Resolved]
  - Nasopharyngitis [Recovered/Resolved]
  - Full blood count abnormal [Recovered/Resolved]
  - Vertigo [Not Recovered/Not Resolved]
  - Vomiting [Not Recovered/Not Resolved]
  - Red blood cell count decreased [Not Recovered/Not Resolved]
  - Haemoglobin decreased [Not Recovered/Not Resolved]

NARRATIVE: CASE EVENT DATE: 20231213
